FAERS Safety Report 8397401 (Version 3)
Quarter: 2013Q2

REPORT INFORMATION
  Report Type: Report from Study
  Country: FR (occurrence: FR)
  Receive Date: 20120209
  Receipt Date: 20130625
  Transmission Date: 20140414
  Serious: Yes (Hospitalization)
  Sender: FDA-Public Use
  Company Number: FR-JNJFOC-20120200341

PATIENT
  Age: 15 Year
  Sex: Male
  Weight: 38.3 kg

DRUGS (4)
  1. INFLIXIMAB, RECOMBINANT [Suspect]
     Indication: CROHN^S DISEASE
     Dosage: DISCONTINUED PRIOR TO ENROLLMENT
     Route: 042
     Dates: start: 20070820
  2. HUMIRA [Concomitant]
     Indication: CROHN^S DISEASE
     Dates: start: 20100427
  3. AZATHIOPRINE [Concomitant]
     Indication: CROHN^S DISEASE
  4. MONTELUKAST [Concomitant]

REACTIONS (1)
  - Crohn^s disease [Recovered/Resolved]
